FAERS Safety Report 8391676-5 (Version None)
Quarter: 2012Q1

REPORT INFORMATION
  Report Type: 
  Country: None (occurrence: None)
  Receive Date: 20120323
  Receipt Date: 20110524
  Transmission Date: 20120608
  Serious: Yes (Hospitalization, Other)
  Sender: FDA-Public Use
  Company Number: 163-21880-11031407

PATIENT
  Age: 73 Year
  Sex: Female

DRUGS (9)
  1. DEXAMETHASONE [Concomitant]
  2. OXYCODONE (OXYCODONE) (UNKNOWN) [Concomitant]
  3. CYCLOBENZAPRINE [Concomitant]
  4. ACYCLOVIR (ACICLOVIR) (UNKNOWN) [Concomitant]
  5. OMEPRAZOLE [Concomitant]
  6. REVLIMID [Suspect]
     Indication: MULTIPLE MYELOMA
     Dosage: 25 MG, 1 IN 1 D, PO
     Route: 048
     Dates: start: 20110101, end: 20110301
  7. HYDROCODONE/ APAP( PROCET /USA/) (UNKNOWN) [Concomitant]
  8. LEVAQUIN [Concomitant]
  9. SULFA/ TRIMETH (DITRIM) (TABLETS) [Concomitant]

REACTIONS (3)
  - WHITE BLOOD CELL COUNT DECREASED [None]
  - NEUTROPHIL COUNT DECREASED [None]
  - RED BLOOD CELL COUNT DECREASED [None]
